FAERS Safety Report 4737758-8 (Version None)
Quarter: 2005Q3

REPORT INFORMATION
  Report Type: 
  Country: None (occurrence: None)
  Receive Date: 20050802
  Receipt Date: 20050713
  Transmission Date: 20060218
  Serious: Yes (Death)
  Sender: FDA-Public Use
  Company Number: WAES 0507USA02003

PATIENT
  Age: 82 Year
  Sex: Female

DRUGS (1)
  1. FOSAMAX [Suspect]
     Dosage: 5 MG/DAILY
     Route: 048
     Dates: start: 20040108

REACTIONS (1)
  - BREAST CANCER RECURRENT [None]
